FAERS Safety Report 8862230 (Version 1)
Quarter: 2012Q4

REPORT INFORMATION
  Report Type: Report from Study
  Country: CA (occurrence: CA)
  Receive Date: 20121026
  Receipt Date: 20121026
  Transmission Date: 20130627
  Serious: Yes (Other)
  Sender: FDA-Public Use
  Company Number: CA-ROCHE-1149223

PATIENT
  Age: 71 Year

DRUGS (4)
  1. RITUXIMAB [Suspect]
     Indication: DIFFUSE LARGE B-CELL LYMPHOMA
     Route: 065
     Dates: start: 201206, end: 201209
  2. GEMCITABINE [Suspect]
     Indication: DIFFUSE LARGE B-CELL LYMPHOMA
     Route: 065
     Dates: start: 201206, end: 201209
  3. DEXAMETHASONE [Suspect]
     Indication: DIFFUSE LARGE B-CELL LYMPHOMA
     Route: 065
     Dates: start: 201206, end: 201209
  4. CISPLATIN [Suspect]
     Indication: DIFFUSE LARGE B-CELL LYMPHOMA
     Route: 065
     Dates: start: 201206, end: 201209

REACTIONS (1)
  - Toxicity to various agents [Unknown]
